FAERS Safety Report 9690354 (Version 2)
Quarter: 2013Q4

REPORT INFORMATION
  Report Type: Spontaneous
  Country: US (occurrence: US)
  Receive Date: 20131115
  Receipt Date: 20131213
  Transmission Date: 20140711
  Serious: Yes (Other)
  Sender: FDA-Public Use
  Company Number: US-ASTELLAS-2013US011720

PATIENT
  Age: 76 Year
  Sex: Female
  Weight: 74 kg

DRUGS (2)
  1. MYRBETRIQ [Suspect]
     Indication: HYPERTONIC BLADDER
     Dosage: 50 MG, UID/QD
     Route: 048
  2. MYRBETRIQ [Suspect]
     Indication: INCONTINENCE

REACTIONS (3)
  - Intentional drug misuse [Unknown]
  - Transient ischaemic attack [Unknown]
  - Blood pressure increased [Recovered/Resolved]
